FAERS Safety Report 20346288 (Version 5)
Quarter: 2022Q3

REPORT INFORMATION
  Report Type: Spontaneous
  Country: US (occurrence: US)
  Receive Date: 20220118
  Receipt Date: 20220816
  Transmission Date: 20221026
  Serious: No
  Sender: FDA-Public Use
  Company Number: US-PFIZER INC-202200026520

PATIENT
  Age: 66 Year
  Sex: Female

DRUGS (2)
  1. IBRANCE [Suspect]
     Active Substance: PALBOCICLIB
     Dosage: 100 MG
     Dates: start: 20220105
  2. IBRANCE [Suspect]
     Active Substance: PALBOCICLIB
     Dosage: UNK
     Dates: start: 20220110

REACTIONS (9)
  - Cancer pain [Unknown]
  - Back pain [Unknown]
  - Upper respiratory tract infection [Unknown]
  - Aphonia [Unknown]
  - Dry throat [Unknown]
  - Dysphonia [Unknown]
  - Alopecia [Unknown]
  - Pallor [Unknown]
  - Anaemia [Unknown]

NARRATIVE: CASE EVENT DATE: 20220101
